FAERS Safety Report 7465232-7 (Version None)
Quarter: 2011Q2

REPORT INFORMATION
  Report Type: 
  Country: None (occurrence: None)
  Receive Date: 20110428
  Receipt Date: 20110420
  Transmission Date: 20111010
  Serious: Yes (Other)
  Sender: FDA-Public Use
  Company Number: TRP_07678_2011

PATIENT
  Sex: Female

DRUGS (1)
  1. ADVAFERON [Suspect]
     Indication: HEPATITIS C
     Dosage: 9 MILLINON IU 3X/WEEK INTRAMUSCULAR
     Route: 030
     Dates: start: 20040101

REACTIONS (2)
  - INJECTION SITE NECROSIS [None]
  - INJECTION SITE INDURATION [None]
